FAERS Safety Report 6388322-9 (Version None)
Quarter: 2009Q4

REPORT INFORMATION
  Report Type: 
  Country: None (occurrence: None)
  Receive Date: 20091001
  Receipt Date: 20091001
  Transmission Date: 20100525
  Serious: Yes (Hospitalization)
  Sender: FDA-Public Use
  Company Number: None

PATIENT
  Age: 16 Year
  Sex: Male
  Weight: 66.2252 kg

DRUGS (1)
  1. AMNESTEEM [Suspect]
     Indication: ACNE
     Dosage: 2 A DAY, 40 MG. EACH ONE A.M., ONE P.M. PO
     Route: 048
     Dates: start: 20090813, end: 20090917

REACTIONS (13)
  - BACK PAIN [None]
  - CHEST PAIN [None]
  - DEPRESSION [None]
  - DIARRHOEA [None]
  - HEADACHE [None]
  - HYPERSENSITIVITY [None]
  - LIP SWELLING [None]
  - MUSCLE SPASMS [None]
  - PAIN IN EXTREMITY [None]
  - PAIN IN JAW [None]
  - PHARYNGEAL OEDEMA [None]
  - PRODUCT SUBSTITUTION ISSUE [None]
  - URTICARIA [None]
